FAERS Safety Report 5699422-0 (Version None)
Quarter: 2008Q2

REPORT INFORMATION
  Report Type: 
  Country: None (occurrence: None)
  Receive Date: 20080407
  Receipt Date: 20080321
  Transmission Date: 20081010
  Serious: Yes (Hospitalization)
  Sender: FDA-Public Use
  Company Number: PIR# 0803049

PATIENT
  Age: 34 Year
  Sex: Female

DRUGS (4)
  1. CEFUROXIME [Suspect]
     Dosage: 500 MG, BID, PO
     Route: 048
  2. PAIN MEDICATION (NOT SPECIFIED) [Concomitant]
  3. ACETAMINOPHEN [Concomitant]
  4. DIPHENHYDRAMINE [Concomitant]

REACTIONS (2)
  - NO THERAPEUTIC RESPONSE [None]
  - SERUM SICKNESS [None]
